FAERS Safety Report 26059076 (Version 1)
Quarter: 2025Q4

REPORT INFORMATION
  Report Type: Spontaneous
  Country: US (occurrence: US)
  Receive Date: 20251118
  Receipt Date: 20251118
  Transmission Date: 20260118
  Serious: No
  Sender: COLLEGIUM PHARMACEUTICAL
  Company Number: US-COLLEGIUM PHARMACEUTICAL, INC.-20250802426

PATIENT

DRUGS (2)
  1. BELBUCA [Suspect]
     Active Substance: BUPRENORPHINE HYDROCHLORIDE
     Indication: Pain
     Dosage: 300 MICROGRAM, BID/ Q12H
     Route: 002
     Dates: start: 20250805
  2. BELBUCA [Suspect]
     Active Substance: BUPRENORPHINE HYDROCHLORIDE
     Dosage: 150 MICROGRAM, BID (Q 12/HR)
     Route: 002
     Dates: start: 20250721, end: 20250805

REACTIONS (1)
  - Product solubility abnormal [None]

NARRATIVE: CASE EVENT DATE: 20250801
